FAERS Safety Report 16413635 (Version 1)
Quarter: 2019Q2

REPORT INFORMATION
  Report Type: Report from Study
  Country: US (occurrence: US)
  Receive Date: 20190611
  Receipt Date: 20190611
  Transmission Date: 20190711
  Serious: Yes (Life-Threatening, Hospitalization)
  Sender: FDA-Public Use
  Company Number: US-GLAXOSMITHKLINE-US2019102512

PATIENT
  Age: 65 Year
  Sex: Female

DRUGS (1)
  1. BELIMUMAB SUBCUTANEOUS [Suspect]
     Active Substance: BELIMUMAB
     Indication: PRODUCT USED FOR UNKNOWN INDICATION
     Dosage: 200 MG, WE
     Route: 058
     Dates: start: 20190408

REACTIONS (2)
  - Heart rate increased [Unknown]
  - Device malfunction [Recovered/Resolved]

NARRATIVE: CASE EVENT DATE: 20190601
